FAERS Safety Report 7375407-3 (Version None)
Quarter: 2011Q1

REPORT INFORMATION
  Report Type: 
  Country: None (occurrence: None)
  Receive Date: 20110325
  Receipt Date: 20101115
  Transmission Date: 20110831
  Serious: Yes (Other)
  Sender: FDA-Public Use
  Company Number: PHHY2010DE90756

PATIENT
  Sex: Female

DRUGS (1)
  1. EXTAVIA [Suspect]
     Dates: start: 20100713

REACTIONS (3)
  - MALAISE [None]
  - HEMIPLEGIA [None]
  - MULTIPLE SCLEROSIS RELAPSE [None]
